FAERS Safety Report 8678302 (Version 9)
Quarter: 2014Q2

REPORT INFORMATION
  Report Type: Report from Study
  Country: US (occurrence: US)
  Receive Date: 20120723
  Receipt Date: 20140401
  Transmission Date: 20141212
  Serious: Yes (Death, Hospitalization)
  Sender: FDA-Public Use
  Company Number: US-ACTELION-A-US2012-68877

PATIENT
  Age: 59 Year
  Sex: Male

DRUGS (3)
  1. VENTAVIS [Suspect]
     Indication: PULMONARY ARTERIAL HYPERTENSION
     Dosage: UNK
     Route: 055
  2. VENTAVIS [Suspect]
     Dosage: 1-3 TIMES DAILY
     Route: 055
  3. VENTAVIS [Suspect]
     Dosage: 5 MCG, 3-6X/DAY
     Route: 055
     Dates: start: 20080220

REACTIONS (9)
  - Death [Fatal]
  - Liver disorder [Unknown]
  - Balance disorder [Unknown]
  - Head injury [Unknown]
  - Depressed mood [Unknown]
  - Confusional state [Unknown]
  - Drug dose omission [Unknown]
  - Asthenia [Unknown]
  - Malaise [Unknown]
